FAERS Safety Report 8530734-9 (Version None)
Quarter: 2012Q3

REPORT INFORMATION
  Report Type: 
  Country: None (occurrence: None)
  Receive Date: 20120723
  Receipt Date: 20120713
  Transmission Date: 20120928
  Serious: Yes (Hospitalization)
  Sender: FDA-Public Use
  Company Number: PHHY2012JP050679

PATIENT
  Age: 62 Year
  Sex: Female

DRUGS (1)
  1. VOLTAREN [Suspect]
     Indication: BACK PAIN

REACTIONS (6)
  - HAEMORRHAGE [None]
  - VASCULAR PSEUDOANEURYSM [None]
  - SHOCK [None]
  - HAEMATEMESIS [None]
  - GASTRIC ULCER [None]
  - ANAEMIA [None]
